FAERS Safety Report 25247379 (Version 1)
Quarter: 2025Q2

REPORT INFORMATION
  Report Type: Report from Study
  Country: DE (occurrence: DE)
  Receive Date: 20250428
  Receipt Date: 20250428
  Transmission Date: 20250717
  Serious: Yes (Hospitalization, Other)
  Sender: MYLAN
  Company Number: DE-BRISTOL-MYERS SQUIBB COMPANY-2024-142556

PATIENT
  Age: 55 Year
  Sex: Female

DRUGS (12)
  1. METHOTREXATE [Suspect]
     Active Substance: METHOTREXATE
     Indication: Rheumatic disorder
     Dosage: 7.5 MILLIGRAM, QW
     Dates: end: 202402
  2. METHOTREXATE [Suspect]
     Active Substance: METHOTREXATE
     Dosage: 7.5 MILLIGRAM, QW
     Route: 065
     Dates: end: 202402
  3. METHOTREXATE [Suspect]
     Active Substance: METHOTREXATE
     Dosage: 7.5 MILLIGRAM, QW
     Route: 065
     Dates: end: 202402
  4. METHOTREXATE [Suspect]
     Active Substance: METHOTREXATE
     Dosage: 7.5 MILLIGRAM, QW
     Dates: end: 202402
  5. ORENCIA [Suspect]
     Active Substance: ABATACEPT
     Indication: Rheumatic disorder
  6. ORENCIA [Suspect]
     Active Substance: ABATACEPT
     Route: 042
  7. ORENCIA [Suspect]
     Active Substance: ABATACEPT
     Route: 042
  8. ORENCIA [Suspect]
     Active Substance: ABATACEPT
  9. BISOPROLOL [Concomitant]
     Active Substance: BISOPROLOL
     Indication: Product used for unknown indication
  10. BISOPROLOL [Concomitant]
     Active Substance: BISOPROLOL
     Route: 065
  11. BISOPROLOL [Concomitant]
     Active Substance: BISOPROLOL
     Route: 065
  12. BISOPROLOL [Concomitant]
     Active Substance: BISOPROLOL

REACTIONS (10)
  - Pericarditis [Not Recovered/Not Resolved]
  - Diabetes mellitus [Unknown]
  - Ear pain [Unknown]
  - Antinuclear antibody positive [Unknown]
  - Iron deficiency [Unknown]
  - Vitamin D deficiency [Unknown]
  - Cholelithiasis [Unknown]
  - Hyperlipidaemia [Unknown]
  - Normochromic normocytic anaemia [Unknown]
  - Pharyngitis [Recovered/Resolved]

NARRATIVE: CASE EVENT DATE: 20240125
